FAERS Safety Report 15825669 (Version 1)
Quarter: 2019Q1

REPORT INFORMATION
  Report Type: Report from Study
  Country: US (occurrence: US)
  Receive Date: 20190115
  Receipt Date: 20190115
  Transmission Date: 20190417
  Serious: Yes (Hospitalization, Other)
  Sender: FDA-Public Use
  Company Number: US-SA-2019SA006305

PATIENT
  Age: 63 Year
  Sex: Female

DRUGS (3)
  1. INSULIN GLARGINE [Suspect]
     Active Substance: INSULIN GLARGINE
     Indication: DIABETES MELLITUS
     Dosage: 60 U, QD
     Route: 058
  2. HUMALOG [Concomitant]
     Active Substance: INSULIN LISPRO
  3. LEVEMIR [Concomitant]
     Active Substance: INSULIN DETEMIR

REACTIONS (20)
  - Intestinal obstruction [Recovered/Resolved]
  - Diabetes mellitus [Recovered/Resolved]
  - Diabetes mellitus [Recovered/Resolved]
  - Cerebrovascular accident [Recovered/Resolved]
  - Balance disorder [Not Recovered/Not Resolved]
  - Weight increased [Recovered/Resolved]
  - Diabetes mellitus [Recovered/Resolved]
  - Vision blurred [Not Recovered/Not Resolved]
  - Diabetic eye disease [Not Recovered/Not Resolved]
  - Diabetes mellitus [Recovered/Resolved]
  - Transient ischaemic attack [Recovered/Resolved]
  - Neuropathy peripheral [Not Recovered/Not Resolved]
  - Memory impairment [Not Recovered/Not Resolved]
  - Ovarian cancer [Recovered/Resolved]
  - Cardiac disorder [Not Recovered/Not Resolved]
  - Thyroid disorder [Recovered/Resolved]
  - Blood pressure increased [Not Recovered/Not Resolved]
  - Impaired gastric emptying [Recovered/Resolved]
  - Depression [Recovered/Resolved]
  - Diabetes mellitus [Recovered/Resolved]

NARRATIVE: CASE EVENT DATE: 1998
